FAERS Safety Report 24205041 (Version 1)
Quarter: 2024Q3

REPORT INFORMATION
  Report Type: Spontaneous
  Country: AU (occurrence: AU)
  Receive Date: 20240813
  Receipt Date: 20240813
  Transmission Date: 20241016
  Serious: Yes (Other)
  Sender: MERCK
  Company Number: AU-009507513-2408AUS002189

PATIENT
  Age: 65 Year
  Sex: Female

DRUGS (1)
  1. PEMBROLIZUMAB [Suspect]
     Active Substance: PEMBROLIZUMAB
     Indication: Malignant melanoma stage III
     Dosage: UNK

REACTIONS (2)
  - Arteriospasm coronary [Unknown]
  - Acute myocardial infarction [Unknown]
